FAERS Safety Report 7277161-2 (Version None)
Quarter: 2011Q1

REPORT INFORMATION
  Report Type: 
  Country: None (occurrence: None)
  Receive Date: 20110202
  Receipt Date: 20110202
  Transmission Date: 20110831
  Serious: Yes (Hospitalization)
  Sender: FDA-Public Use
  Company Number: None

PATIENT
  Age: 63 Year
  Sex: Male
  Weight: 74 kg

DRUGS (1)
  1. LISINOPRIL [Suspect]
     Indication: HYPERTENSION
     Dosage: 20 MG BID PO
     Route: 048
     Dates: start: 19970915, end: 20101220

REACTIONS (7)
  - HYPERKALAEMIA [None]
  - VOMITING [None]
  - MALAISE [None]
  - ABDOMINAL PAIN [None]
  - DRUG DOSE OMISSION [None]
  - DIARRHOEA [None]
  - REFUSAL OF TREATMENT BY PATIENT [None]
